FAERS Safety Report 22397562 (Version 1)
Quarter: 2023Q2

REPORT INFORMATION
  Report Type: Spontaneous
  Country: JP (occurrence: JP)
  Receive Date: 20230602
  Receipt Date: 20230602
  Transmission Date: 20230722
  Serious: Yes (Other)
  Sender: FDA-Public Use
  Company Number: JP-ASTELLAS-2023JP006303

PATIENT
  Age: 17 Year
  Sex: Female

DRUGS (8)
  1. PROGRAF [Suspect]
     Active Substance: TACROLIMUS
     Indication: Immunosuppressant drug therapy
     Dosage: UNK UNK, UNKNOWN FREQ.
     Route: 065
  2. MYCOPHENOLATE MOFETIL [Concomitant]
     Active Substance: MYCOPHENOLATE MOFETIL
     Indication: Immunosuppressant drug therapy
     Dosage: UNK UNK, UNKNOWN FREQ.
     Route: 065
  3. PREDNISOLONE [Concomitant]
     Active Substance: PREDNISOLONE
     Indication: Immunosuppressant drug therapy
     Dosage: UNK UNK, UNKNOWN FREQ.
     Route: 065
  4. EVEROLIMUS [Concomitant]
     Active Substance: EVEROLIMUS
     Indication: Immunosuppressant drug therapy
     Dosage: UNK UNK, UNKNOWN FREQ.
     Route: 065
  5. EVEROLIMUS [Concomitant]
     Active Substance: EVEROLIMUS
     Dosage: UNK UNK, UNKNOWN FREQ.
     Route: 065
  6. SARS-CoV-2 vaccine [Concomitant]
     Indication: COVID-19 immunisation
     Dosage: UNK UNK, UNKNOWN FREQ.
     Route: 065
  7. SARS-CoV-2 vaccine [Concomitant]
     Dosage: UNK UNK, UNKNOWN FREQ.
     Route: 065
  8. SARS-CoV-2 vaccine [Concomitant]
     Dosage: UNK UNK, UNKNOWN FREQ.
     Route: 065

REACTIONS (11)
  - Liver transplant rejection [Recovering/Resolving]
  - Complications of transplanted liver [Recovering/Resolving]
  - Transplant rejection [Recovering/Resolving]
  - Liver transplant rejection [Recovering/Resolving]
  - Transplant rejection [Unknown]
  - Liver transplant rejection [Unknown]
  - Vanishing bile duct syndrome [Unknown]
  - Hepatic fibrosis [Unknown]
  - Icterus index increased [Unknown]
  - Hepatic enzyme increased [Unknown]
  - Hepatic enzyme increased [Unknown]
